FAERS Safety Report 17902703 (Version 4)
Quarter: 2021Q4

REPORT INFORMATION
  Report Type: Spontaneous
  Country: US (occurrence: US)
  Receive Date: 20200616
  Receipt Date: 20211116
  Transmission Date: 20220303
  Serious: Yes (Other)
  Sender: FDA-Public Use
  Company Number: US-PURDUE PHARMA-USA-2020-0152823

PATIENT
  Age: 31 Year
  Sex: Female

DRUGS (4)
  1. OXYCONTIN [Suspect]
     Active Substance: OXYCODONE HYDROCHLORIDE
     Indication: Product used for unknown indication
     Dosage: 80 TO 100 PILLS PER WEEK
     Route: 048
  2. OXYCODONE HYDROCHLORIDE [Suspect]
     Active Substance: OXYCODONE HYDROCHLORIDE
     Indication: Pain
     Dosage: UNK
     Route: 048
     Dates: start: 200201, end: 200204
  3. ACETAMINOPHEN\HYDROCODONE BITARTRATE [Suspect]
     Active Substance: ACETAMINOPHEN\HYDROCODONE BITARTRATE
     Indication: Product used for unknown indication
     Dosage: 80 TO 100 PILLS PER WEEK
     Route: 048
  4. TRAMADOL [Suspect]
     Active Substance: TRAMADOL
     Indication: Pain
     Dosage: UNK
     Route: 048
     Dates: start: 200201, end: 200202

REACTIONS (21)
  - Haemorrhage [Unknown]
  - Gastrointestinal haemorrhage [Unknown]
  - Malaise [Unknown]
  - Loss of consciousness [Unknown]
  - Drug interaction [Unknown]
  - Cardiomyopathy [Unknown]
  - Liver injury [Unknown]
  - Nightmare [Unknown]
  - Fall [Unknown]
  - Abdominal distension [Unknown]
  - Spinal pain [Unknown]
  - Vaginal haemorrhage [Unknown]
  - Constipation [Unknown]
  - Diarrhoea [Unknown]
  - Cognitive disorder [Unknown]
  - Pelvic pain [Unknown]
  - Rash [Unknown]
  - Blood calcium decreased [Unknown]
  - Renal disorder [Unknown]
  - Bladder disorder [Unknown]
  - Unevaluable event [Unknown]

NARRATIVE: CASE EVENT DATE: 20020201
